FAERS Safety Report 20732220 (Version 1)
Quarter: 2022Q2

REPORT INFORMATION
  Report Type: Spontaneous
  Country: None (occurrence: US)
  Receive Date: 20220420
  Receipt Date: 20220420
  Transmission Date: 20220721
  Serious: Yes (Other)
  Sender: FDA-Public Use
  Company Number: US-Performance Health, LLC-2127965

PATIENT
  Age: 46 Year
  Sex: Female

DRUGS (4)
  1. BIOFREEZE PROFESSIONAL [Suspect]
     Active Substance: MENTHOL
     Indication: Analgesic therapy
     Route: 003
     Dates: start: 20210728, end: 20210728
  2. CALAMINE [Suspect]
     Active Substance: CALAMINE\FERRIC OXIDE RED\ZINC OXIDE
  3. Oral Antibiotic - unkown active [Concomitant]
  4. Topical Antibiotic - unkown actives [Concomitant]

REACTIONS (1)
  - Application site burn [Recovering/Resolving]

NARRATIVE: CASE EVENT DATE: 20210729
